FAERS Safety Report 6516440-0 (Version None)
Quarter: 2009Q4

REPORT INFORMATION
  Report Type: 
  Country: None (occurrence: None)
  Receive Date: 20091223
  Receipt Date: 20091217
  Transmission Date: 20100525
  Serious: Yes (Life-Threatening, Hospitalization)
  Sender: FDA-Public Use
  Company Number: Z0002675A

PATIENT
  Sex: Male
  Weight: 72 kg

DRUGS (2)
  1. OFATUMUMAB [Suspect]
     Route: 042
     Dates: start: 20090909
  2. CHLORAMBUCIL [Suspect]
     Route: 048
     Dates: start: 20090909

REACTIONS (1)
  - PNEUMONIA [None]
